FAERS Safety Report 8862773 (Version 1)
Quarter: 2012Q4

REPORT INFORMATION
  Report Type: 
  Country: FR (occurrence: FR)
  Receive Date: 20121026
  Receipt Date: 20121026
  Transmission Date: 20130627
  Serious: Yes (Other)
  Sender: FDA-Public Use
  Company Number: FR-ALLERGAN-1214445US

PATIENT
  Age: 60 Year
  Sex: Female

DRUGS (1)
  1. GANFORT [Suspect]
     Indication: GLAUCOMA
     Dosage: UNK
     Route: 047
     Dates: start: 2009

REACTIONS (4)
  - Amnestic disorder [Not Recovered/Not Resolved]
  - Microangiopathy [Not Recovered/Not Resolved]
  - Vertigo [Not Recovered/Not Resolved]
  - Diplopia [Not Recovered/Not Resolved]
